FAERS Safety Report 20981368 (Version 5)
Quarter: 2023Q1

REPORT INFORMATION
  Report Type: Spontaneous
  Country: US (occurrence: US)
  Receive Date: 20220620
  Receipt Date: 20230317
  Transmission Date: 20230417
  Serious: No
  Sender: FDA-Public Use
  Company Number: US-BRISTOL-MYERS SQUIBB COMPANY-2022-060509

PATIENT
  Age: 73 Year
  Sex: Female

DRUGS (2)
  1. REVLIMID [Suspect]
     Active Substance: LENALIDOMIDE
     Indication: Plasma cell myeloma
     Dosage: 10 MILLIGRAM DAILY
     Route: 048
     Dates: start: 201908
  2. REVLIMID [Suspect]
     Active Substance: LENALIDOMIDE
     Route: 048
     Dates: start: 20200831

REACTIONS (7)
  - Bone disorder [Unknown]
  - Feeling cold [Unknown]
  - Fatigue [Unknown]
  - Pain [Unknown]
  - Hypertension [Unknown]
  - Gingival disorder [Unknown]
  - Oral pain [Unknown]

NARRATIVE: CASE EVENT DATE: 20220315
